FAERS Safety Report 6872807-2 (Version None)
Quarter: 2010Q3

REPORT INFORMATION
  Report Type: 
  Country: None (occurrence: None)
  Receive Date: 20100723
  Receipt Date: 20081111
  Transmission Date: 20110219
  Serious: No
  Sender: FDA-Public Use
  Company Number: US-PFIZER INC-2008090880

PATIENT
  Sex: Female
  Weight: 63.6 kg

DRUGS (2)
  1. CHANTIX [Suspect]
     Indication: SMOKING CESSATION THERAPY
     Dosage: 1 MG, 2X/DAY
     Route: 048
     Dates: start: 20080911, end: 20080923
  2. TOPAMAX [Concomitant]
     Dosage: UNK
     Dates: start: 20080101

REACTIONS (3)
  - CONSTIPATION [None]
  - FLATULENCE [None]
  - UNEVALUABLE EVENT [None]
